FAERS Safety Report 23789041 (Version 1)
Quarter: 2024Q2

REPORT INFORMATION
  Report Type: Report from Study
  Country: US (occurrence: US)
  Receive Date: 20240426
  Receipt Date: 20240426
  Transmission Date: 20240716
  Serious: Yes (Death)
  Sender: FDA-Public Use
  Company Number: US-OTSUKA-2024_012103

PATIENT
  Age: 81 Year
  Sex: Female
  Weight: 65.77 kg

DRUGS (1)
  1. CEDAZURIDINE\DECITABINE [Suspect]
     Active Substance: CEDAZURIDINE\DECITABINE
     Indication: Product used for unknown indication
     Dosage: 1 DF (35 MG DECITABINE AND 100 MG CEDAZURIDINE) QD ON DAYS 1 THROUGH 5 EVERY 28 DAYS
     Route: 065
     Dates: start: 2023

REACTIONS (1)
  - Death [Fatal]

NARRATIVE: CASE EVENT DATE: 20240417
